FAERS Safety Report 10931970 (Version 2)
Quarter: 2015Q2

REPORT INFORMATION
  Report Type: Spontaneous
  Country: US (occurrence: US)
  Receive Date: 20150319
  Receipt Date: 20150407
  Transmission Date: 20150821
  Serious: Yes (Death, Hospitalization, Other)
  Sender: FDA-Public Use
  Company Number: US-GILEAD-2015-0142806

PATIENT
  Age: 52 Year
  Sex: Female

DRUGS (3)
  1. SOVALDI [Suspect]
     Active Substance: SOFOSBUVIR
     Indication: HEPATITIS C
     Dosage: UNK
     Route: 065
     Dates: start: 20141006
  2. PEGYLATED INTERFERON ALFA-2A [Concomitant]
     Active Substance: PEGINTERFERON ALFA-2A
     Indication: HEPATITIS C
     Dosage: UNK
     Route: 065
     Dates: start: 20141006
  3. RIBAVIRIN. [Concomitant]
     Active Substance: RIBAVIRIN
     Indication: HEPATITIS C
     Dosage: UNK
     Route: 065
     Dates: start: 20141006

REACTIONS (8)
  - Coagulopathy [Unknown]
  - Multi-organ failure [Fatal]
  - Septic shock [Fatal]
  - Pneumonia necrotising [Unknown]
  - Intestinal ischaemia [Unknown]
  - Anaemia [Unknown]
  - Pneumonia staphylococcal [Unknown]
  - Dry gangrene [Unknown]

NARRATIVE: CASE EVENT DATE: 20141215
